FAERS Safety Report 17055204 (Version 3)
Quarter: 2019Q4

REPORT INFORMATION
  Report Type: Spontaneous
  Country: US (occurrence: US)
  Receive Date: 20191120
  Receipt Date: 20191212
  Transmission Date: 20200122
  Serious: Yes (Hospitalization, Other)
  Sender: FDA-Public Use
  Company Number: US-PFIZER INC-2019485026

PATIENT
  Age: 62 Year
  Sex: Male
  Weight: 72.57 kg

DRUGS (2)
  1. CHAPSTICK CLASSICS ORIGINAL [Suspect]
     Active Substance: PADIMATE O\PETROLATUM
     Indication: DRY MOUTH
     Dosage: UNK, FIFTEEN TIMES A DAY/15 TIMES A DAY OR MORE
     Dates: start: 1960
  2. CHAPSTICK CLASSICS ORIGINAL [Suspect]
     Active Substance: PADIMATE O\PETROLATUM
     Indication: LIP DRY

REACTIONS (3)
  - Lung neoplasm malignant [Unknown]
  - Poor quality product administered [Unknown]
  - Product physical issue [Unknown]
